FAERS Safety Report 23789091 (Version 1)
Quarter: 2024Q2

REPORT INFORMATION
  Report Type: Spontaneous
  Country: US (occurrence: None)
  Receive Date: 20240425
  Receipt Date: 20240425
  Transmission Date: 20240717
  Serious: No
  Sender: FDA-Public Use
  Company Number: None

PATIENT
  Age: 39 Year
  Sex: Male
  Weight: 83.25 kg

DRUGS (1)
  1. DOXYCYCLINE HYCLATE [Suspect]
     Active Substance: DOXYCYCLINE HYCLATE
     Dosage: 14 TABLETS TWICE A DAY  BY MOUTH?
     Route: 050
     Dates: start: 20240419, end: 20240425

REACTIONS (3)
  - Chest pain [None]
  - Product use complaint [None]
  - Pain [None]

NARRATIVE: CASE EVENT DATE: 20240423
